FAERS Safety Report 18482992 (Version 2)
Quarter: 2020Q4

REPORT INFORMATION
  Report Type: Spontaneous
  Country: CO (occurrence: CO)
  Receive Date: 20201110
  Receipt Date: 20201208
  Transmission Date: 20210114
  Serious: Yes (Hospitalization)
  Sender: FDA-Public Use
  Company Number: CO-ROCHE-2708871

PATIENT
  Age: 15 Year
  Sex: Female
  Weight: 29 kg

DRUGS (2)
  1. PULMOZYME [Suspect]
     Active Substance: DORNASE ALFA
     Route: 045
     Dates: start: 20110609
  2. PULMOZYME [Suspect]
     Active Substance: DORNASE ALFA
     Indication: CYSTIC FIBROSIS
     Dosage: DOSE AND FREQUENCY WERE NOT REPORTED
     Route: 048
     Dates: start: 20110609

REACTIONS (4)
  - Pneumothorax [Recovered/Resolved]
  - Bronchial secretion retention [Recovered/Resolved]
  - Pyrexia [Recovered/Resolved]
  - Infective pulmonary exacerbation of cystic fibrosis [Recovered/Resolved]

NARRATIVE: CASE EVENT DATE: 20200927
